FAERS Safety Report 23897002 (Version 1)
Quarter: 2024Q2

REPORT INFORMATION
  Report Type: Spontaneous
  Country: US (occurrence: US)
  Receive Date: 20240524
  Receipt Date: 20240524
  Transmission Date: 20240716
  Serious: No
  Sender: FDA-Public Use
  Company Number: US-FreseniusKabi-FK202407541

PATIENT
  Age: 61 Year
  Sex: Female
  Weight: 131.5 kg

DRUGS (1)
  1. DIPRIVAN [Suspect]
     Active Substance: ISOPROPYL ALCOHOL\PROPOFOL
     Indication: Sedation
     Dosage: INJECTABLE EMULSION?150 MCG PER KG PER MIN; ADDITIONAL BOLUS: 50MG, 20MG
     Route: 040
     Dates: start: 20240508, end: 20240508

REACTIONS (1)
  - Therapeutic product effect decreased [Unknown]

NARRATIVE: CASE EVENT DATE: 20240508
